FAERS Safety Report 5309659-8 (Version None)
Quarter: 2007Q2

REPORT INFORMATION
  Report Type: 
  Country: None (occurrence: None)
  Receive Date: 20070427
  Receipt Date: 20060824
  Transmission Date: 20071010
  Serious: No
  Sender: FDA-Public Use
  Company Number: US-GLAXOSMITHKLINE-A0617999A

PATIENT
  Age: 54 Year
  Sex: Male

DRUGS (19)
  1. DEXEDRINE [Suspect]
     Indication: NARCOLEPSY
     Dosage: 10MG FIVE TIMES PER DAY
     Route: 048
     Dates: start: 20060601
  2. WELCHOL [Concomitant]
  3. ALBUTEROL [Concomitant]
  4. AVANDIA [Concomitant]
  5. ASPIRIN [Concomitant]
  6. PRANDIN [Concomitant]
  7. ZYRTEC [Concomitant]
  8. METFORMIN HCL [Concomitant]
  9. PREVACID [Concomitant]
  10. ETODOLAC [Concomitant]
  11. LISINOPRIL [Concomitant]
  12. LANTUS [Concomitant]
  13. HUMALOG [Concomitant]
  14. BYETTA [Concomitant]
  15. FLEXERIL [Concomitant]
  16. QUININE SULFATE [Concomitant]
  17. NASACORT [Concomitant]
  18. ASTELIN [Concomitant]
  19. LESCOL [Concomitant]

REACTIONS (1)
  - INSOMNIA [None]
